FAERS Safety Report 17646343 (Version 1)
Quarter: 2020Q2

REPORT INFORMATION
  Report Type: Report from Study
  Country: MX (occurrence: MX)
  Receive Date: 20200408
  Receipt Date: 20200408
  Transmission Date: 20200713
  Serious: Yes (Other)
  Sender: FDA-Public Use
  Company Number: NVSC2020MX094736

PATIENT
  Sex: Female
  Weight: 52 kg

DRUGS (1)
  1. FEMARA [Suspect]
     Active Substance: LETROZOLE
     Indication: NEOPLASM
     Dosage: 1 DF, QD (2.5 MG)
     Route: 048

REACTIONS (3)
  - Gait disturbance [Unknown]
  - Movement disorder [Unknown]
  - Product use in unapproved indication [Unknown]
